FAERS Safety Report 8862976 (Version 1)
Quarter: 2012Q4

REPORT INFORMATION
  Report Type: 
  Country: US (occurrence: US)
  Receive Date: 20121026
  Receipt Date: 20121026
  Transmission Date: 20130627
  Serious: No
  Sender: FDA-Public Use
  Company Number: US-ALLERGAN-1205842US

PATIENT
  Age: 81 Year
  Sex: Male

DRUGS (2)
  1. ALPHAGAN P [Suspect]
     Indication: INTRAOCULAR PRESSURE INCREASED
     Dosage: 2 Gtt, tid
     Route: 047
     Dates: start: 20120411
  2. LUMIGAN [Concomitant]
     Indication: INCREASED INTRAOCULAR PRESSURE
     Dosage: 2 Gtt, qhs
     Route: 047

REACTIONS (5)
  - Incorrect dose administered [Unknown]
  - Vision blurred [Unknown]
  - Headache [Unknown]
  - Eye pain [Unknown]
  - Drug dose omission [None]
